FAERS Safety Report 26104749 (Version 1)
Quarter: 2025Q4

REPORT INFORMATION
  Report Type: Spontaneous
  Country: MY (occurrence: MY)
  Receive Date: 20251130
  Receipt Date: 20251130
  Transmission Date: 20260117
  Serious: Yes (Life-Threatening, Hospitalization, Other)
  Sender: ALKEM
  Company Number: MY-ALKEM LABORATORIES LIMITED-MY-ALKEM-2025-03848

PATIENT
  Age: 4 Decade
  Sex: Female

DRUGS (5)
  1. MYCOPHENOLATE MOFETIL [Suspect]
     Active Substance: MYCOPHENOLATE MOFETIL
     Indication: IgA nephropathy
     Dosage: UNK
     Route: 065
  2. DAPAGLIFLOZIN [Suspect]
     Active Substance: DAPAGLIFLOZIN
     Indication: Proteinuria
     Dosage: 5 MILLIGRAM, QD (INITIAL DOSE)
     Route: 065
  3. DAPAGLIFLOZIN [Suspect]
     Active Substance: DAPAGLIFLOZIN
     Dosage: 10 MILLIGRAM, QD (TITRATED)
     Route: 065
  4. PERINDOPRIL [Concomitant]
     Active Substance: PERINDOPRIL
     Indication: IgA nephropathy
     Dosage: 8 MILLIGRAM, QD
     Route: 065
  5. PREDNISOLONE [Concomitant]
     Active Substance: PREDNISOLONE
     Indication: IgA nephropathy
     Dosage: 1 MILLIGRAM/KILOGRAM, QD
     Route: 065

REACTIONS (3)
  - Osmotic nephropathy [Recovering/Resolving]
  - Acute kidney injury [Recovering/Resolving]
  - Therapy partial responder [Unknown]
